FAERS Safety Report 6063748-1 (Version None)
Quarter: 2009Q1

REPORT INFORMATION
  Report Type: 
  Country: None (occurrence: None)
  Receive Date: 20090204
  Receipt Date: 20090123
  Transmission Date: 20090719
  Serious: Yes (Other)
  Sender: FDA-Public Use
  Company Number: DE-RANBAXY-2009RR-21406

PATIENT
  Age: 30 Year
  Sex: Female

DRUGS (3)
  1. AMOXICILLIN [Suspect]
     Dosage: 1500 MG, QD
     Route: 048
  2. METRONIDAZOLE [Suspect]
     Indication: PERIODONTAL DISEASE
     Dosage: 1200 MG, QD
     Route: 048
  3. THYRONAJOD [Concomitant]
     Indication: THYROID DISORDER

REACTIONS (3)
  - DIARRHOEA [None]
  - EAR PAIN [None]
  - PARAESTHESIA [None]
